FAERS Safety Report 5050480-6 (Version None)
Quarter: 2006Q3

REPORT INFORMATION
  Report Type: 
  Country: None (occurrence: None)
  Receive Date: 20060713
  Receipt Date: 20060125
  Transmission Date: 20061208
  Serious: Yes (Other)
  Sender: FDA-Public Use
  Company Number: US-ROCHE-433886

PATIENT
  Sex: Male
  Weight: 165 kg

DRUGS (1)
  1. ACCUTANE [Suspect]
     Indication: ACNE
     Route: 048
     Dates: start: 19940315, end: 19940715

REACTIONS (3)
  - MASS [None]
  - NIGHT BLINDNESS [None]
  - WEGENER'S GRANULOMATOSIS [None]
